FAERS Safety Report 9334409 (Version 1)
Quarter: 2013Q2

REPORT INFORMATION
  Report Type: Spontaneous
  Country: US (occurrence: US)
  Receive Date: 20130606
  Receipt Date: 20130606
  Transmission Date: 20140414
  Serious: No
  Sender: FDA-Public Use
  Company Number: US-009507513-1306USA000420

PATIENT
  Sex: Female

DRUGS (1)
  1. EMEND [Suspect]
     Indication: PROPHYLAXIS OF NAUSEA AND VOMITING
     Dosage: UNK, 125 MG/80 MG 1 BOTTLE OF 3
     Route: 048
     Dates: start: 201304

REACTIONS (5)
  - Capsule physical issue [Unknown]
  - Drug dose omission [Unknown]
  - Product quality issue [Unknown]
  - Malaise [Recovered/Resolved]
  - Nausea [Recovered/Resolved]
